FAERS Safety Report 6579277-2 (Version None)
Quarter: 2010Q1

REPORT INFORMATION
  Report Type: 
  Country: None (occurrence: None)
  Receive Date: 20100212
  Receipt Date: 20100203
  Transmission Date: 20100710
  Serious: Yes (Hospitalization, Other)
  Sender: FDA-Public Use
  Company Number: GB-ASTRAZENECA-2010SE04994

PATIENT
  Age: 43 Year
  Sex: Female
  Weight: 77 kg

DRUGS (3)
  1. OMEPRAZOLE [Suspect]
     Indication: DYSPEPSIA
     Route: 048
     Dates: start: 20080115, end: 20080205
  2. MEFENAMIC ACID [Concomitant]
     Indication: DYSMENORRHOEA
     Route: 048
  3. TRANEXAMIC ACID [Concomitant]
     Indication: MENORRHAGIA
     Route: 048

REACTIONS (1)
  - EOSINOPHILIA [None]
